FAERS Safety Report 15952890 (Version 2)
Quarter: 2019Q1

REPORT INFORMATION
  Report Type: Spontaneous
  Country: DE (occurrence: DE)
  Receive Date: 20190211
  Receipt Date: 20190305
  Transmission Date: 20190417
  Serious: Yes (Congenital Anomaly, Other)
  Sender: FDA-Public Use
  Company Number: DE-DRREDDYS-GER/GER/19/0107531

PATIENT
  Sex: Female
  Weight: 4.43 kg

DRUGS (3)
  1. FOLSAURE [Concomitant]
     Active Substance: FOLIC ACID
     Indication: PRODUCT USED FOR UNKNOWN INDICATION
     Route: 064
     Dates: start: 20170127, end: 20171106
  2. METFORMIN [Suspect]
     Active Substance: METFORMIN HYDROCHLORIDE
     Indication: PRODUCT USED FOR UNKNOWN INDICATION
     Dosage: 3000 [MG/D (3 X 1000) ]
     Route: 064
  3. CETIRIZINE [Suspect]
     Active Substance: CETIRIZINE HYDROCHLORIDE
     Indication: PRODUCT USED FOR UNKNOWN INDICATION
     Route: 064
     Dates: start: 20170310, end: 20170515

REACTIONS (3)
  - Foetal exposure during pregnancy [Unknown]
  - Pelvi-ureteric obstruction [Not Recovered/Not Resolved]
  - Hydronephrosis [Not Recovered/Not Resolved]
